FAERS Safety Report 6604165-2 (Version None)
Quarter: 2010Q1

REPORT INFORMATION
  Report Type: 
  Country: None (occurrence: None)
  Receive Date: 20100226
  Receipt Date: 20090708
  Transmission Date: 20100710
  Serious: No
  Sender: FDA-Public Use
  Company Number: A0791820A

PATIENT
  Age: 9 Year
  Sex: Male
  Weight: 24.8 kg

DRUGS (1)
  1. LAMICTAL CD [Suspect]
     Dosage: 100MG PER DAY
     Route: 048
     Dates: start: 20081201, end: 20090601

REACTIONS (3)
  - DENTAL CARIES [None]
  - GINGIVAL DISORDER [None]
  - TOOTH DISORDER [None]
